FAERS Safety Report 6018995-1 (Version None)
Quarter: 2008Q4

REPORT INFORMATION
  Report Type: 
  Country: None (occurrence: None)
  Receive Date: 20081224
  Receipt Date: 20081222
  Transmission Date: 20090506
  Serious: Yes (Hospitalization)
  Sender: FDA-Public Use
  Company Number: FR-BRISTOL-MYERS SQUIBB COMPANY-14452734

PATIENT
  Age: 41 Year
  Sex: Male

DRUGS (3)
  1. ZERIT [Suspect]
     Indication: ANTIRETROVIRAL THERAPY
     Dosage: 1 DOSAGE FORM = 2/D UNIT NOT SPECIFIED
     Dates: start: 19960722, end: 20030926
  2. EPIVIR [Suspect]
     Indication: ANTIRETROVIRAL THERAPY
     Dosage: 1 DOSAGE FORM = 2/D UNIT NOT SPECIFIED
     Dates: start: 19960722, end: 20030926
  3. INVIRASE [Concomitant]
     Dates: start: 19960722

REACTIONS (6)
  - CYTOLYTIC HEPATITIS [None]
  - LACTIC ACIDOSIS [None]
  - MACROCYTOSIS [None]
  - POLYCYTHAEMIA [None]
  - RENAL FAILURE ACUTE [None]
  - THROMBOCYTOPENIA [None]
